FAERS Safety Report 13740422 (Version 3)
Quarter: 2018Q1

REPORT INFORMATION
  Report Type: Spontaneous
  Country: US (occurrence: US)
  Receive Date: 20170711
  Receipt Date: 20180112
  Transmission Date: 20180508
  Serious: No
  Sender: FDA-Public Use
  Company Number: US-ALKERMES INC.-ALK-2017-002535

PATIENT
  Age: 27 Year
  Sex: Female
  Weight: 72.56 kg

DRUGS (5)
  1. OTHER THERAPEUTIC PRODUCTS [Concomitant]
     Active Substance: UNSPECIFIED INGREDIENT
     Indication: PRODUCT USED FOR UNKNOWN INDICATION
     Dosage: UNK, PRN
  2. ARISTADA [Suspect]
     Active Substance: ARIPIPRAZOLE LAUROXIL
     Indication: SCHIZOPHRENIA
     Dosage: 882 MG, QMO
     Route: 030
     Dates: start: 20170116, end: 20171013
  3. FLUOXETINE [Concomitant]
     Active Substance: FLUOXETINE HYDROCHLORIDE
     Indication: PRODUCT USED FOR UNKNOWN INDICATION
     Dosage: 20 MG, QD
  4. ARISTADA [Suspect]
     Active Substance: ARIPIPRAZOLE LAUROXIL
     Dosage: 1064 MG, Q8WK
     Route: 030
     Dates: start: 20171013
  5. LAMOTRIGINE. [Concomitant]
     Active Substance: LAMOTRIGINE
     Indication: PRODUCT USED FOR UNKNOWN INDICATION
     Dosage: 25 MG, QD

REACTIONS (13)
  - Drug administration error [Unknown]
  - Condition aggravated [Recovered/Resolved]
  - Agitation [Unknown]
  - Injection site pain [Not Recovered/Not Resolved]
  - Needle issue [Not Recovered/Not Resolved]
  - Anxiety [Unknown]
  - Paranoia [Recovering/Resolving]
  - Product use issue [Not Recovered/Not Resolved]
  - Therapeutic response shortened [Recovering/Resolving]
  - Depression [Recovering/Resolving]
  - Hallucination, auditory [Recovering/Resolving]
  - Derealisation [Recovering/Resolving]
  - Injection site mass [Not Recovered/Not Resolved]

NARRATIVE: CASE EVENT DATE: 2017
